FAERS Safety Report 4559438-4 (Version None)
Quarter: 2005Q1

REPORT INFORMATION
  Report Type: 
  Country: None (occurrence: None)
  Receive Date: 20050124
  Receipt Date: 20050112
  Transmission Date: 20050727
  Serious: Yes (Death)
  Sender: FDA-Public Use
  Company Number: JP-JNJFOC-20041207553

PATIENT
  Age: 48 Year
  Sex: Female

DRUGS (5)
  1. RISPERDAL [Suspect]
     Indication: DRUG USE FOR UNKNOWN INDICATION
     Dosage: TOTAL DAILY DOSE = 3-4 MG/DAY.
     Route: 049
  2. LITIUM [Suspect]
     Route: 049
  3. LITIUM [Suspect]
     Indication: DRUG USE FOR UNKNOWN INDICATION
     Route: 049
  4. QUETIAPINE FUMARATE [Suspect]
     Indication: DRUG USE FOR UNKNOWN INDICATION
     Route: 049
  5. CLONAZEPAM [Concomitant]

REACTIONS (2)
  - PYREXIA [None]
  - SUDDEN DEATH [None]
